FAERS Safety Report 5959621-7 (Version None)
Quarter: 2008Q4

REPORT INFORMATION
  Report Type: 
  Country: None (occurrence: None)
  Receive Date: 20081120
  Receipt Date: 20081112
  Transmission Date: 20090506
  Serious: Yes (Other)
  Sender: FDA-Public Use
  Company Number: CA-JNJFOC-20080305638

PATIENT
  Sex: Female
  Weight: 71 kg

DRUGS (3)
  1. REMICADE [Suspect]
     Dosage: ^TO THE PRESENT^
     Route: 042
  2. REMICADE [Suspect]
     Dosage: 14 TOTAL DOSES
     Route: 042
  3. REMICADE [Suspect]
     Indication: CROHN'S DISEASE
     Route: 042

REACTIONS (2)
  - BREAST CANCER [None]
  - LYMPHADENITIS [None]
